FAERS Safety Report 11561536 (Version 2)
Quarter: 2021Q1

REPORT INFORMATION
  Report Type: Report from Study
  Country: FR (occurrence: FR)
  Receive Date: 20150928
  Receipt Date: 20210226
  Transmission Date: 20210419
  Serious: Yes (Other)
  Sender: FDA-Public Use
  Company Number: FR-PFIZER INC-2015310347

PATIENT
  Weight: 1 kg

DRUGS (1)
  1. IBUPROFEN. [Suspect]
     Active Substance: IBUPROFEN
     Indication: PROPHYLAXIS
     Dosage: INITIAL DOSE OF 10 MG/KG, UNK

REACTIONS (2)
  - Hypoxia [Recovered/Resolved]
  - Pulmonary hypertension [Unknown]
